FAERS Safety Report 24608108 (Version 3)
Quarter: 2025Q3

REPORT INFORMATION
  Report Type: Spontaneous
  Country: EU (occurrence: EU)
  Receive Date: 20241112
  Receipt Date: 20250809
  Transmission Date: 20251021
  Serious: Yes (Hospitalization, Other)
  Sender: ALEXION PHARMACEUTICALS
  Company Number: EU-AstraZeneca-CH-00741001A

PATIENT
  Age: 49 Year
  Sex: Male
  Weight: 124 kg

DRUGS (18)
  1. SAPHNELO [Suspect]
     Active Substance: ANIFROLUMAB-FNIA
     Indication: Systemic lupus erythematosus
     Dates: start: 20230414, end: 202411
  2. HYDROXYCHLOROQUINE [Concomitant]
     Active Substance: HYDROXYCHLOROQUINE
  3. MYCOPHENOLATE MOFETIL [Concomitant]
     Active Substance: MYCOPHENOLATE MOFETIL
  4. PREDNISOLONE [Concomitant]
     Active Substance: PREDNISOLONE
  5. Ospen [Concomitant]
  6. PHENPROCOUMON [Concomitant]
     Active Substance: PHENPROCOUMON
  7. AMLODIPINE BESYLATE [Concomitant]
     Active Substance: AMLODIPINE BESYLATE
  8. LISINOPRIL [Concomitant]
     Active Substance: LISINOPRIL
  9. ROSUVASTATIN [Concomitant]
     Active Substance: ROSUVASTATIN
  10. METHIMAZOLE [Concomitant]
     Active Substance: METHIMAZOLE
  11. PANTOPRAZOLE SODIUM [Concomitant]
     Active Substance: PANTOPRAZOLE SODIUM
  12. Novalgin [Concomitant]
  13. HYDROMORPHONE HYDROCHLORIDE [Concomitant]
     Active Substance: HYDROMORPHONE HYDROCHLORIDE
  14. PREGABALIN [Concomitant]
     Active Substance: PREGABALIN
  15. Oleovit [Concomitant]
  16. POLYETHYLENE GLYCOL 3350\POTASSIUM CHLORIDE\SODIUM BICARBONATE\SODIUM [Concomitant]
     Active Substance: POLYETHYLENE GLYCOL 3350\POTASSIUM CHLORIDE\SODIUM BICARBONATE\SODIUM CHLORIDE
  17. TIANEPTINE [Concomitant]
     Active Substance: TIANEPTINE
  18. ZOLPIDEM TARTRATE [Concomitant]
     Active Substance: ZOLPIDEM TARTRATE

REACTIONS (13)
  - Hepatic cancer [Unknown]
  - Renal haemorrhage [Unknown]
  - Escherichia infection [Unknown]
  - Abscess [Unknown]
  - Osteoporotic fracture [Unknown]
  - Spinal synovial cyst [Unknown]
  - Nephritis [Unknown]
  - Nephritis [Unknown]
  - Erysipelas [Unknown]
  - Erysipelas [Unknown]
  - Osteomyelitis [Unknown]
  - Acute myocardial infarction [Unknown]
  - Acute myocardial infarction [Unknown]

NARRATIVE: CASE EVENT DATE: 20240701
